FAERS Safety Report 7038543-7 (Version None)
Quarter: 2010Q4

REPORT INFORMATION
  Report Type: 
  Country: None (occurrence: None)
  Receive Date: 20101011
  Receipt Date: 20100727
  Transmission Date: 20110411
  Serious: Yes (Other)
  Sender: FDA-Public Use
  Company Number: US-PFIZER INC-2007017718

PATIENT
  Sex: Male

DRUGS (4)
  1. NEURONTIN [Suspect]
     Indication: PAIN
     Dosage: 300 MG, 3X/DAY
     Dates: start: 20040505, end: 20040825
  2. LEVOXYL [Concomitant]
     Dosage: UNK
     Dates: start: 20030103, end: 20060601
  3. HUMULIN R [Concomitant]
     Dosage: UNK
     Dates: start: 20030122, end: 20060601
  4. HYDROCODONE [Concomitant]
     Dosage: UNK
     Dates: start: 20030227, end: 20060602

REACTIONS (2)
  - DRUG INEFFECTIVE [None]
  - SUICIDE ATTEMPT [None]
